FAERS Safety Report 7465597-6 (Version None)
Quarter: 2011Q2

REPORT INFORMATION
  Report Type: 
  Country: None (occurrence: None)
  Receive Date: 20110509
  Receipt Date: 20110421
  Transmission Date: 20111010
  Serious: No
  Sender: FDA-Public Use
  Company Number: US-B.I. PHARMACEUTICALS,INC./RIDGEFIELD-2011-BP-03469BP

PATIENT
  Age: 71 Year
  Sex: Male
  Weight: 79.8 kg

DRUGS (9)
  1. FUROSEMIDE [Concomitant]
     Dosage: 40 MG
  2. JANUVIA [Concomitant]
     Dosage: 100 MG
  3. OMEPRAZOLE [Concomitant]
     Dosage: 20 MG
  4. PRANDIN [Concomitant]
     Dosage: 3 MG
  5. COREG [Concomitant]
     Dosage: 25 MG
  6. TRILIPUR [Concomitant]
     Dosage: 45 MG
  7. CRESTOR [Concomitant]
     Dosage: 20 MG
  8. PRADAXA [Suspect]
     Indication: ATRIAL FIBRILLATION
     Dosage: 300 MG
     Dates: start: 20110110
  9. DIGOXIN [Concomitant]
     Dosage: 0.125 MG

REACTIONS (1)
  - HYPERGLYCAEMIA [None]
